FAERS Safety Report 10272590 (Version 1)
Quarter: 2014Q3

REPORT INFORMATION
  Report Type: Spontaneous
  Country: US (occurrence: US)
  Receive Date: 20140702
  Receipt Date: 20140702
  Transmission Date: 20150326
  Serious: Yes (Other)
  Sender: FDA-Public Use
  Company Number: US-JNJFOC-20140617655

PATIENT
  Sex: Male

DRUGS (3)
  1. FLUTICASONE PROPIONATE / SALMETEROL [Concomitant]
     Indication: ASTHMA
     Dosage: DOSE 500/50 MGG
     Route: 065
  2. SPORANOX [Suspect]
     Active Substance: ITRACONAZOLE\SODIUM CHLORIDE
     Indication: PULMONARY MYCOSIS
     Route: 065
  3. LIPITOR [Interacting]
     Active Substance: ATORVASTATIN CALCIUM
     Indication: BLOOD CHOLESTEROL INCREASED
     Route: 065
     Dates: start: 2005, end: 2005

REACTIONS (2)
  - Abasia [Unknown]
  - Drug interaction [Unknown]

NARRATIVE: CASE EVENT DATE: 2005
